FAERS Safety Report 14492424 (Version 2)
Quarter: 2021Q2

REPORT INFORMATION
  Report Type: Spontaneous
  Country: FR (occurrence: FR)
  Receive Date: 20180206
  Receipt Date: 20210421
  Transmission Date: 20210716
  Serious: Yes (Hospitalization, Other)
  Sender: FDA-Public Use
  Company Number: FR-PFIZER INC-2018046867

PATIENT
  Age: 45 Year
  Sex: Female

DRUGS (5)
  1. PARACETAMOL [Suspect]
     Active Substance: ACETAMINOPHEN
     Indication: INTENTIONAL OVERDOSE
     Dosage: 42 G, UNK
     Route: 048
     Dates: start: 20171127, end: 20171127
  2. DOXYCYCLINE MONOHYDRATE [Suspect]
     Active Substance: DOXYCYCLINE
     Indication: CYST
     Dosage: UNK
     Route: 048
     Dates: start: 201711, end: 20171127
  3. AMOXICILLIN. [Suspect]
     Active Substance: AMOXICILLIN
     Indication: INTENTIONAL OVERDOSE
     Dosage: UNK, (1 BOX)
     Route: 048
  4. IBUPROFEN. [Suspect]
     Active Substance: IBUPROFEN
     Indication: INTENTIONAL OVERDOSE
     Dosage: UNK, (NP)
     Route: 048
     Dates: start: 20171127, end: 20171127
  5. EFFEXOR [Suspect]
     Active Substance: VENLAFAXINE HYDROCHLORIDE
     Indication: DEPRESSION
     Dosage: UNK, (NP)
     Route: 048
     Dates: start: 20171127, end: 20171127

REACTIONS (3)
  - Suicide attempt [Unknown]
  - Acute generalised exanthematous pustulosis [Recovered/Resolved]
  - Intentional overdose [Unknown]

NARRATIVE: CASE EVENT DATE: 20171127
